FAERS Safety Report 5138584-0 (Version None)
Quarter: 2006Q4

REPORT INFORMATION
  Report Type: 
  Country: None (occurrence: None)
  Receive Date: 20061030
  Receipt Date: 20060317
  Transmission Date: 20070319
  Serious: No
  Sender: FDA-Public Use
  Company Number: US-GLAXOSMITHKLINE-A0598053A

PATIENT
  Age: 78 Year
  Sex: Male

DRUGS (7)
  1. ADVAIR HFA [Suspect]
     Indication: ASTHMA
     Dosage: 1PUFF TWICE PER DAY
     Route: 055
  2. TOPROL-XL [Concomitant]
  3. RANITIDINE [Concomitant]
  4. ZOCOR [Concomitant]
  5. PROSCAR [Concomitant]
  6. ASPIRIN [Concomitant]
  7. LISINOPRIL [Concomitant]

REACTIONS (2)
  - COUGH [None]
  - THROAT IRRITATION [None]
